FAERS Safety Report 9162553 (Version 2)
Quarter: 2013Q1

REPORT INFORMATION
  Report Type: Spontaneous
  Country: FR (occurrence: None)
  Receive Date: 20130225
  Receipt Date: 20130301
  Transmission Date: 20140127
  Serious: Yes (Disabling, Other)
  Sender: FDA-Public Use
  Company Number: 220540

PATIENT
  Age: 76 Year
  Sex: Female
  Weight: 65 kg

DRUGS (3)
  1. INNOHEP (TINZAPARIN SODIUM) [Suspect]
     Indication: PRODUCT USED FOR UNKNOWN INDICATION
     Route: 058
     Dates: start: 20130120
  2. GEMZAR (GEMCITABINE) [Suspect]
     Indication: OVARIAN CANCER
     Route: 042
     Dates: start: 20130117, end: 20130119
  3. CARBOPLATINE (CARB-OPLATIN) [Concomitant]

REACTIONS (1)
  - Cellulitis [None]
